FAERS Safety Report 10623380 (Version 1)
Quarter: 2014Q4

REPORT INFORMATION
  Report Type: Report from Study
  Country: HU (occurrence: HU)
  Receive Date: 20141203
  Receipt Date: 20141203
  Transmission Date: 20150529
  Serious: Yes (Hospitalization)
  Sender: FDA-Public Use
  Company Number: HU-BRISTOL-MYERS SQUIBB COMPANY-21661129

PATIENT
  Age: 42 Year
  Sex: Female

DRUGS (1)
  1. BYDUREON [Suspect]
     Active Substance: EXENATIDE
     Indication: DIABETES MELLITUS
     Dosage: 1DF= 1 INJECTION?ONGOING
     Route: 058
     Dates: start: 201407

REACTIONS (2)
  - Vision blurred [Recovered/Resolved]
  - Menstrual disorder [Recovering/Resolving]

NARRATIVE: CASE EVENT DATE: 201410
